FAERS Safety Report 21661115 (Version 5)
Quarter: 2023Q2

REPORT INFORMATION
  Report Type: Spontaneous
  Country: US (occurrence: US)
  Receive Date: 20221130
  Receipt Date: 20230417
  Transmission Date: 20230722
  Serious: Yes (Other)
  Sender: FDA-Public Use
  Company Number: US-BRISTOL-MYERS SQUIBB COMPANY-2022-144663

PATIENT
  Age: 77 Year
  Sex: Male

DRUGS (8)
  1. REVLIMID [Suspect]
     Active Substance: LENALIDOMIDE
     Indication: Plasma cell myeloma
     Dosage: FREQUENCY: DAILYX21 DAYS
     Route: 048
     Dates: start: 20220926, end: 20221114
  2. REVLIMID [Suspect]
     Active Substance: LENALIDOMIDE
     Dosage: FREQUENCY:QD X 28D
     Route: 048
     Dates: start: 20220930, end: 20221222
  3. REVLIMID [Suspect]
     Active Substance: LENALIDOMIDE
     Dosage: QOD (EVERY OTHER DAY)
     Route: 048
     Dates: start: 20220930
  4. REVLIMID [Suspect]
     Active Substance: LENALIDOMIDE
     Dosage: 10 MG FOR 14 DAYS, THEN OFF FOR 7 DAYS FOR A 21 DAY CYCLE, DAILY FOR 14 DAYS
     Route: 048
     Dates: start: 20221129, end: 20230403
  5. DARZALEX [Concomitant]
     Active Substance: DARATUMUMAB
     Indication: Product used for unknown indication
     Dosage: 100MG/5ML, 1 VIAL
  6. DEXAMETHASONE [Concomitant]
     Active Substance: DEXAMETHASONE
     Indication: Product used for unknown indication
  7. HYDROMORPHONE HCL [Concomitant]
     Active Substance: HYDROMORPHONE HYDROCHLORIDE
     Indication: Product used for unknown indication
  8. ZOMETA [Concomitant]
     Active Substance: ZOLEDRONIC ACID
     Indication: Product used for unknown indication
     Dosage: 4MG/5ML INJ, 5ML

REACTIONS (4)
  - Neutropenia [Unknown]
  - White blood cell count decreased [Unknown]
  - Platelet count decreased [Unknown]
  - Off label use [Unknown]

NARRATIVE: CASE EVENT DATE: 20221114
